FAERS Safety Report 6330465-X (Version None)
Quarter: 2009Q3

REPORT INFORMATION
  Report Type: 
  Country: None (occurrence: None)
  Receive Date: 20090826
  Receipt Date: 20090826
  Transmission Date: 20100115
  Serious: Yes (Other)
  Sender: FDA-Public Use
  Company Number: None

PATIENT
  Age: 62 Year
  Sex: Female
  Weight: 58.9676 kg

DRUGS (1)
  1. GEODON [Suspect]
     Dosage: 80 MG EACH DAY DAILY PO
     Route: 048
     Dates: start: 20040101

REACTIONS (2)
  - DYSTONIA [None]
  - JAW DISORDER [None]
